FAERS Safety Report 19087180 (Version 3)
Quarter: 2021Q2

REPORT INFORMATION
  Report Type: Spontaneous
  Country: US (occurrence: US)
  Receive Date: 20210402
  Receipt Date: 20210412
  Transmission Date: 20210717
  Serious: Yes (Hospitalization, Other)
  Sender: FDA-Public Use
  Company Number: US-ORGANON-O2104USA000025

PATIENT
  Sex: Male
  Weight: 68.03 kg

DRUGS (3)
  1. SINEMET [Suspect]
     Active Substance: CARBIDOPA\LEVODOPA
     Dosage: UNK, EXTRA DOSE UNSPECIFIED
     Route: 048
     Dates: start: 2019
  2. DUOPA [Suspect]
     Active Substance: CARBIDOPA\LEVODOPA
     Indication: PARKINSON^S DISEASE
     Dosage: UNK
     Dates: start: 20180724
  3. DUOPA [Suspect]
     Active Substance: CARBIDOPA\LEVODOPA
     Dosage: UNK
     Dates: start: 202012

REACTIONS (15)
  - Device dislocation [Recovered/Resolved]
  - Hypophagia [Recovering/Resolving]
  - Psychomotor hyperactivity [Recovered/Resolved]
  - Insomnia [Recovered/Resolved]
  - Product use issue [Unknown]
  - Asthenia [Recovered/Resolved]
  - Aspiration [Recovered/Resolved]
  - Malnutrition [Recovered/Resolved]
  - Device kink [Recovered/Resolved]
  - Dehydration [Recovered/Resolved]
  - Gastrointestinal tube insertion [Recovered/Resolved]
  - Pain [Recovering/Resolving]
  - Depression [Recovered/Resolved]
  - Hallucination [Recovered/Resolved]
  - Hyperphagia [Recovering/Resolving]

NARRATIVE: CASE EVENT DATE: 2019
